FAERS Safety Report 21584153 (Version 1)
Quarter: 2022Q4

REPORT INFORMATION
  Report Type: Spontaneous
  Country: US (occurrence: US)
  Receive Date: 20221111
  Receipt Date: 20221111
  Transmission Date: 20230113
  Serious: No
  Sender: FDA-Public Use
  Company Number: US-BIOVITRUM-2022US12777

PATIENT
  Age: 73 Year
  Sex: Female

DRUGS (2)
  1. DOPTELET [Suspect]
     Active Substance: AVATROMBOPAG MALEATE
     Indication: Product used for unknown indication
     Dosage: 20MG TWICE A DAY DURING MONDAY, WEDNESDAY AND FRIDAY AND THE REST OF THE WEEK IS 20 MG ONCE A DAY.
     Dates: start: 202008
  2. DOPTELET [Suspect]
     Active Substance: AVATROMBOPAG MALEATE
     Dosage: 20MG TWICE A DAY DURING MONDAY, WEDNESDAY AND FRIDAY AND THE REST OF THE WEEK IS 20 MG ONCE A DAY.
     Dates: start: 202008

REACTIONS (3)
  - Thyroid function test abnormal [Unknown]
  - Glycosylated haemoglobin abnormal [Unknown]
  - Full blood count abnormal [Unknown]

NARRATIVE: CASE EVENT DATE: 20220801
